FAERS Safety Report 5263688-1 (Version None)
Quarter: 2007Q1

REPORT INFORMATION
  Report Type: 
  Country: None (occurrence: None)
  Receive Date: 20070312
  Receipt Date: 20070312
  Transmission Date: 20070707
  Serious: No
  Sender: FDA-Public Use
  Company Number: None

PATIENT
  Sex: Female
  Weight: 13 kg

DRUGS (5)
  1. GAMUNEX [Suspect]
     Dosage: 2.5GM X 2 Q28D IV
     Route: 042
     Dates: start: 20070302
  2. GAMUNEX [Suspect]
     Dosage: 1GM X 1 Q28D IV
     Route: 042
  3. DEXTROSE [Concomitant]
  4. BENADRYL [Concomitant]
  5. SODIUM CHLORIDE [Concomitant]

REACTIONS (5)
  - COMMUNICATION DISORDER [None]
  - DYSKINESIA [None]
  - INFUSION RELATED REACTION [None]
  - LIP SWELLING [None]
  - OPISTHOTONUS [None]
